FAERS Safety Report 9417835 (Version 1)
Quarter: 2013Q3

REPORT INFORMATION
  Report Type: Spontaneous
  Country: GB (occurrence: GB)
  Receive Date: 20130724
  Receipt Date: 20130724
  Transmission Date: 20140515
  Serious: Yes (Hospitalization, Other)
  Sender: FDA-Public Use
  Company Number: GB-TEVA-420185ISR

PATIENT
  Sex: Female

DRUGS (3)
  1. DICLOFENAC [Suspect]
  2. XGEVA [Suspect]
     Indication: PRODUCT USED FOR UNKNOWN INDICATION
  3. EVEROLIMUS [Concomitant]

REACTIONS (3)
  - Duodenal ulcer haemorrhage [Unknown]
  - Hypocalcaemia [Recovered/Resolved]
  - Duodenal ulcer [Unknown]
